FAERS Safety Report 6656620-7 (Version None)
Quarter: 2010Q1

REPORT INFORMATION
  Report Type: 
  Country: None (occurrence: None)
  Receive Date: 20100329
  Receipt Date: 20100323
  Transmission Date: 20100710
  Serious: Yes (Death, Hospitalization, Other)
  Sender: FDA-Public Use
  Company Number: US-CELGENEUS-163-21880-10030064

PATIENT
  Sex: Male

DRUGS (11)
  1. REVLIMID [Suspect]
     Indication: MULTIPLE MYELOMA
     Route: 048
     Dates: start: 20091021, end: 20090101
  2. REVLIMID [Suspect]
     Route: 048
     Dates: start: 20080724, end: 20081110
  3. REVLIMID [Suspect]
     Route: 048
     Dates: start: 20091014, end: 20091021
  4. DEXAMETHASONE [Concomitant]
     Indication: MULTIPLE MYELOMA
     Route: 065
  5. LEVAQUIN [Concomitant]
     Indication: DRUG USE FOR UNKNOWN INDICATION
     Route: 065
     Dates: start: 20091101
  6. NEUPOGEN [Concomitant]
     Indication: NEUTROPENIA
     Route: 065
     Dates: start: 20091101
  7. TAMIFLU [Concomitant]
     Indication: INFLUENZA
     Route: 065
     Dates: start: 20091101
  8. ZITHROMAX [Concomitant]
     Indication: COUGH
     Route: 065
     Dates: start: 20091001
  9. CLARITHROMYCIN [Concomitant]
     Indication: COUGH
     Route: 065
     Dates: start: 20091001
  10. OXYGEN [Concomitant]
     Route: 045
     Dates: start: 20091108
  11. ANTIBIOTICS [Concomitant]
     Indication: DRUG USE FOR UNKNOWN INDICATION
     Route: 065
     Dates: start: 20091101

REACTIONS (5)
  - ATRIAL FLUTTER [None]
  - MULTI-ORGAN FAILURE [None]
  - MULTIPLE MYELOMA [None]
  - PANCYTOPENIA [None]
  - PULMONARY SEPSIS [None]
